FAERS Safety Report 5605882-3 (Version None)
Quarter: 2008Q1

REPORT INFORMATION
  Report Type: 
  Country: None (occurrence: None)
  Receive Date: 20080129
  Receipt Date: 20080115
  Transmission Date: 20080703
  Serious: Yes (Hospitalization)
  Sender: FDA-Public Use
  Company Number: NL-AMGEN-UK256523

PATIENT
  Sex: Female

DRUGS (4)
  1. NEULASTA [Suspect]
     Indication: CHEMOTHERAPY
     Dates: start: 20070904
  2. DOCETAXEL [Suspect]
     Dates: start: 20070903
  3. DOXORUBICIN HYDROCHLORIDE [Suspect]
     Dates: start: 20070905
  4. CYCLOPHOSPHAMIDE [Suspect]
     Dates: start: 20070903

REACTIONS (2)
  - NEUTROPENIA [None]
  - PYREXIA [None]
